FAERS Safety Report 21688874 (Version 1)
Quarter: 2022Q4

REPORT INFORMATION
  Report Type: Spontaneous
  Country: US (occurrence: None)
  Receive Date: 20221205
  Receipt Date: 20221205
  Transmission Date: 20230113
  Serious: Yes (Other)
  Sender: FDA-Public Use
  Company Number: None

PATIENT
  Age: 10 Year
  Sex: Male
  Weight: 27 kg

DRUGS (1)
  1. OSELTAMIVIR [Suspect]
     Active Substance: OSELTAMIVIR
     Indication: Influenza
     Dates: start: 20221115, end: 20221119

REACTIONS (4)
  - Confusional state [None]
  - Delusion [None]
  - Defiant behaviour [None]
  - Restlessness [None]

NARRATIVE: CASE EVENT DATE: 20221120
